FAERS Safety Report 16391781 (Version 1)
Quarter: 2019Q2

REPORT INFORMATION
  Report Type: Spontaneous
  Country: US (occurrence: US)
  Receive Date: 20190605
  Receipt Date: 20190605
  Transmission Date: 20190711
  Serious: No
  Sender: FDA-Public Use
  Company Number: US-ROCHE-2226452

PATIENT
  Age: 59 Year
  Sex: Female
  Weight: 84.9 kg

DRUGS (5)
  1. OCREVUS [Suspect]
     Active Substance: OCRELIZUMAB
     Dosage: 2ND 1/2 DOSE RECEIVED
     Route: 042
     Dates: start: 20181113
  2. IMURAN [Concomitant]
     Active Substance: AZATHIOPRINE
  3. COPAXONE [Concomitant]
     Active Substance: GLATIRAMER ACETATE
  4. REBIF [Concomitant]
     Active Substance: INTERFERON BETA-1A
  5. OCREVUS [Suspect]
     Active Substance: OCRELIZUMAB
     Indication: RELAPSING MULTIPLE SCLEROSIS
     Dosage: 1ST 1/2 DOSE RECEIVED
     Route: 042
     Dates: start: 20181030

REACTIONS (5)
  - Syncope [Recovered/Resolved]
  - Asthenia [Recovered/Resolved]
  - Dizziness [Not Recovered/Not Resolved]
  - Gait disturbance [Recovered/Resolved]
  - Flushing [Not Recovered/Not Resolved]

NARRATIVE: CASE EVENT DATE: 20181113
